FAERS Safety Report 5073181-7 (Version None)
Quarter: 2006Q3

REPORT INFORMATION
  Report Type: 
  Country: None (occurrence: None)
  Receive Date: 20060808
  Receipt Date: 20060728
  Transmission Date: 20061208
  Serious: Yes (Other)
  Sender: FDA-Public Use
  Company Number: US-JNJFOC-20060700467

PATIENT
  Sex: Female
  Weight: 73.03 kg

DRUGS (7)
  1. REMICADE [Suspect]
  2. REMICADE [Suspect]
     Indication: RHEUMATOID ARTHRITIS
  3. PREDNISONE [Concomitant]
  4. CORTISONE [Concomitant]
  5. LEFLUNOMIDE [Concomitant]
  6. METHOTREXATE [Concomitant]
  7. IBUPROFEN [Concomitant]

REACTIONS (1)
  - DIFFUSE LARGE B-CELL LYMPHOMA STAGE III [None]
